FAERS Safety Report 9146920 (Version 1)
Quarter: 2013Q1

REPORT INFORMATION
  Report Type: Report from Study
  Country: FR (occurrence: FR)
  Receive Date: 20130307
  Receipt Date: 20130307
  Transmission Date: 20140127
  Serious: Yes (Death, Other)
  Sender: FDA-Public Use
  Company Number: FR-GENZYME-CLOF-1001294

PATIENT
  Age: 57 Year
  Sex: Female

DRUGS (12)
  1. EVOLTRA [Suspect]
     Indication: ACUTE MYELOID LEUKAEMIA
     Dosage: 52 MG, QDX5
     Route: 042
     Dates: start: 20100717, end: 20100721
  2. EVOLTRA [Suspect]
     Indication: BONE MARROW CONDITIONING REGIMEN
  3. THYMOGLOBULINE [Suspect]
     Indication: ACUTE MYELOID LEUKAEMIA
     Dosage: 182 MG, QD
     Route: 042
     Dates: start: 20100727, end: 20100728
  4. THYMOGLOBULINE [Suspect]
     Indication: BONE MARROW CONDITIONING REGIMEN
  5. ARACYTINE [Suspect]
     Indication: ACUTE MYELOID LEUKAEMIA
     Dosage: 1.73 G, QD
     Route: 042
     Dates: start: 20100717, end: 20100725
  6. ARACYTINE [Suspect]
     Indication: BONE MARROW CONDITIONING REGIMEN
  7. ENDOXAN [Suspect]
     Indication: ACUTE MYELOID LEUKAEMIA
     Dosage: 4.38 G, ONCE
     Route: 042
     Dates: start: 20100725, end: 20100725
  8. ENDOXAN [Suspect]
     Indication: BONE MARROW CONDITIONING REGIMEN
  9. BUSILVEX [Suspect]
     Indication: ACUTE MYELOID LEUKAEMIA
     Dosage: 219 MG, QD
     Route: 042
     Dates: start: 20100726, end: 20100727
  10. BUSILVEX [Suspect]
     Indication: BONE MARROW CONDITIONING REGIMEN
  11. CICLOSPORIN [Suspect]
     Indication: ACUTE MYELOID LEUKAEMIA
     Dosage: 219 MG, QD
     Route: 042
     Dates: start: 20100727, end: 20100801
  12. CELLCEPT [Suspect]
     Indication: ACUTE MYELOID LEUKAEMIA
     Dosage: 2 G, QD
     Route: 048
     Dates: start: 20100727, end: 20100801

REACTIONS (4)
  - Multi-organ failure [Fatal]
  - Septic shock [Fatal]
  - Skin toxicity [Unknown]
  - Acute myeloid leukaemia [Fatal]
